FAERS Safety Report 5178428-4 (Version None)
Quarter: 2006Q4

REPORT INFORMATION
  Report Type: 
  Country: None (occurrence: None)
  Receive Date: 20061218
  Receipt Date: 20060822
  Transmission Date: 20070319
  Serious: No
  Sender: FDA-Public Use
  Company Number: US-AMGEN-KDL190949

PATIENT
  Sex: Male

DRUGS (1)
  1. ENBREL [Suspect]
     Indication: ANKYLOSING SPONDYLITIS
     Route: 058
     Dates: start: 20050831

REACTIONS (5)
  - ALCOHOL USE [None]
  - DIZZINESS [None]
  - FALL [None]
  - LOCALISED INFECTION [None]
  - SKIN LACERATION [None]
